FAERS Safety Report 7693771-2 (Version None)
Quarter: 2011Q3

REPORT INFORMATION
  Report Type: 
  Country: None (occurrence: None)
  Receive Date: 20110819
  Receipt Date: 20110810
  Transmission Date: 20111222
  Serious: Yes (Hospitalization, Other)
  Sender: FDA-Public Use
  Company Number: US-JNJFOC-20110708851

PATIENT
  Sex: Male
  Weight: 82.9 kg

DRUGS (14)
  1. MULTI-VITAMINS [Concomitant]
     Route: 065
  2. GEMCITABINE [Suspect]
     Indication: TRANSITIONAL CELL CARCINOMA
     Route: 065
     Dates: start: 20110614, end: 20110614
  3. NEXIUM [Concomitant]
     Route: 048
  4. FERROUS SULFATE TAB [Concomitant]
     Route: 048
  5. PLAVIX [Concomitant]
     Route: 048
  6. DOXORUBICIN HCL [Suspect]
     Indication: TRANSITIONAL CELL CARCINOMA
     Dosage: EVERY 2 WEEKS
     Route: 042
     Dates: start: 20110614, end: 20110614
  7. METOPROLOL [Concomitant]
     Route: 048
  8. HYDROCODONE [Concomitant]
     Indication: PAIN
     Route: 048
  9. DOXORUBICIN HCL [Suspect]
     Dosage: EVERY 2 WEEKS
     Route: 042
     Dates: start: 20110614, end: 20110614
  10. LACTULOSE [Concomitant]
     Route: 065
  11. TAMSULOSIN HCL [Concomitant]
     Route: 048
  12. PRAVASTATIN [Concomitant]
     Route: 048
  13. ASPIRIN [Concomitant]
     Route: 065
  14. BORTEZOMIB [Suspect]
     Indication: TRANSITIONAL CELL CARCINOMA
     Route: 042
     Dates: start: 20110614, end: 20110614

REACTIONS (4)
  - PLATELET COUNT DECREASED [None]
  - WHITE BLOOD CELL COUNT ABNORMAL [None]
  - HAEMOGLOBIN DECREASED [None]
  - URINARY BLADDER HAEMORRHAGE [None]
